FAERS Safety Report 25328968 (Version 4)
Quarter: 2025Q3

REPORT INFORMATION
  Report Type: Report from Study
  Country: US (occurrence: US)
  Receive Date: 20250519
  Receipt Date: 20250820
  Transmission Date: 20251020
  Serious: No
  Sender: SUNOVION
  Company Number: US-SMPA-2025SPA004970AA

PATIENT
  Age: 74 Year
  Sex: Male

DRUGS (6)
  1. ORGOVYX [Suspect]
     Active Substance: RELUGOLIX
     Indication: Prostate cancer
     Route: 048
  2. ORGOVYX [Suspect]
     Active Substance: RELUGOLIX
     Dosage: 120 MG, QD
     Route: 048
     Dates: start: 202306
  3. ERLEADA [Suspect]
     Active Substance: APALUTAMIDE
     Indication: Prostate cancer
     Route: 048
  4. Calcium 600 plus vitamin d3 [Concomitant]
  5. MELOXICAM [Concomitant]
     Active Substance: MELOXICAM
  6. Adult multivitamin [Concomitant]

REACTIONS (6)
  - Neuropathy peripheral [Unknown]
  - Joint swelling [Unknown]
  - Rash [Unknown]
  - Fatigue [Unknown]
  - Incorrect dose administered [Unknown]
  - Product dose omission in error [Recovered/Resolved]
